FAERS Safety Report 8776770 (Version 2)
Quarter: 2012Q4

REPORT INFORMATION
  Report Type: 
  Country: US (occurrence: US)
  Receive Date: 20120910
  Receipt Date: 20120925
  Transmission Date: 20130627
  Serious: Yes (Hospitalization)
  Sender: FDA-Public Use
  Company Number: US-MERCK-1209USA001297

PATIENT
  Sex: Female

DRUGS (5)
  1. SAPHRIS [Suspect]
     Indication: AFFECTIVE DISORDER
     Dosage: TABRD, 5 mg, 1 unit dose of 100
     Route: 060
     Dates: start: 201208
  2. SAPHRIS [Suspect]
     Indication: MENTAL DISORDER
  3. SAPHRIS [Suspect]
     Indication: MANIA
  4. SAPHRIS [Suspect]
     Indication: SUICIDAL BEHAVIOUR
  5. LEXAPRO [Concomitant]

REACTIONS (2)
  - Speech disorder [Recovering/Resolving]
  - Sedation [Recovering/Resolving]
